FAERS Safety Report 7055831-9 (Version None)
Quarter: 2010Q4

REPORT INFORMATION
  Report Type: 
  Country: None (occurrence: None)
  Receive Date: 20101018
  Receipt Date: 20100917
  Transmission Date: 20110411
  Serious: No
  Sender: FDA-Public Use
  Company Number: 2010-00861

PATIENT
  Age: 77 Year
  Sex: Male
  Weight: 79.3795 kg

DRUGS (8)
  1. ZICAM COLD REMEDY PLUS LIQUI-LOZ [Suspect]
     Dosage: 3-4 HRS APART, 2 DOSES
     Dates: start: 20100916, end: 20100917
  2. ALLOPURINOL [Concomitant]
  3. DEPAMIDE [Concomitant]
  4. LIPITOR [Concomitant]
  5. SINGULAIR [Concomitant]
  6. FISH OIL [Concomitant]
  7. MULTI-VITAMIN [Concomitant]
  8. ASPIRIN [Concomitant]

REACTIONS (2)
  - AGEUSIA [None]
  - DRY MOUTH [None]
